FAERS Safety Report 6901282-4 (Version None)
Quarter: 2010Q3

REPORT INFORMATION
  Report Type: 
  Country: None (occurrence: None)
  Receive Date: 20100803
  Receipt Date: 20100630
  Transmission Date: 20110219
  Serious: Yes (Hospitalization, Other)
  Sender: FDA-Public Use
  Company Number: PHEH2006US15656

PATIENT

DRUGS (1)
  1. AREDIA [Suspect]
     Indication: METASTASES TO BONE

REACTIONS (10)
  - ARTERIOSCLEROSIS [None]
  - ARTHRALGIA [None]
  - ATELECTASIS [None]
  - CARDIOMEGALY [None]
  - DELIRIUM [None]
  - FALL [None]
  - OSTEONECROSIS OF JAW [None]
  - PLEURAL EFFUSION [None]
  - RENAL ATROPHY [None]
  - SPINAL OSTEOARTHRITIS [None]
